FAERS Safety Report 5162722-7 (Version None)
Quarter: 2006Q4

REPORT INFORMATION
  Report Type: 
  Country: None (occurrence: None)
  Receive Date: 20061201
  Receipt Date: 20060413
  Transmission Date: 20070319
  Serious: No
  Sender: FDA-Public Use
  Company Number: US-GLAXOSMITHKLINE-A0601666A

PATIENT
  Age: 12 Year
  Sex: Male

DRUGS (2)
  1. AUGMENTIN XR [Suspect]
     Indication: ABSCESS
     Dosage: 2G TWICE PER DAY
     Route: 048
     Dates: start: 20050329
  2. NO CONCURRENT MEDICATION [Concomitant]

REACTIONS (2)
  - ABDOMINAL PAIN UPPER [None]
  - THIRST [None]
